FAERS Safety Report 24422841 (Version 1)
Quarter: 2024Q4

REPORT INFORMATION
  Report Type: Spontaneous
  Country: US (occurrence: US)
  Receive Date: 20241010
  Receipt Date: 20241010
  Transmission Date: 20250115
  Serious: Yes (Hospitalization, Other)
  Sender: APOTEX
  Company Number: US-APOTEX-2024AP011697

PATIENT
  Age: 84 Year
  Sex: Female

DRUGS (1)
  1. ITRACONAZOLE [Suspect]
     Active Substance: ITRACONAZOLE
     Indication: Cutaneous blastomycosis
     Dosage: 400 MILLIGRAM, QD
     Route: 048

REACTIONS (1)
  - Cardiac failure [Recovered/Resolved]
